FAERS Safety Report 25946085 (Version 1)
Quarter: 2025Q4

REPORT INFORMATION
  Report Type: Spontaneous
  Country: EU (occurrence: EU)
  Receive Date: 20251021
  Receipt Date: 20251021
  Transmission Date: 20260118
  Serious: Yes (Other)
  Sender: BEIGENE
  Company Number: EU-BEIGENE-BGN-2025-017972

PATIENT

DRUGS (2)
  1. BRUKINSA [Suspect]
     Active Substance: ZANUBRUTINIB
     Indication: Product used for unknown indication
     Dosage: 320 MILLIGRAM, QD
  2. BRUKINSA [Suspect]
     Active Substance: ZANUBRUTINIB
     Dosage: 320 MILLIGRAM, QD

REACTIONS (2)
  - Cardiac tamponade [Unknown]
  - Pleural effusion [Unknown]
